FAERS Safety Report 6999381-4 (Version None)
Quarter: 2010Q3

REPORT INFORMATION
  Report Type: 
  Country: None (occurrence: None)
  Receive Date: 20100920
  Receipt Date: 20100617
  Transmission Date: 20110219
  Serious: No
  Sender: FDA-Public Use
  Company Number: US-ASTRAZENECA-2010SE14829

PATIENT
  Sex: Female

DRUGS (2)
  1. SEROQUEL XR [Suspect]
     Indication: DEPRESSION
     Route: 048
  2. SEROQUEL XR [Suspect]
     Route: 048

REACTIONS (5)
  - ADVERSE EVENT [None]
  - EMOTIONAL DISORDER [None]
  - INTERVERTEBRAL DISC DISORDER [None]
  - NASOPHARYNGITIS [None]
  - WEIGHT INCREASED [None]
